FAERS Safety Report 6944409-0 (Version None)
Quarter: 2010Q3

REPORT INFORMATION
  Report Type: 
  Country: None (occurrence: None)
  Receive Date: 20100827
  Receipt Date: 20100818
  Transmission Date: 20110219
  Serious: Yes (Other)
  Sender: FDA-Public Use
  Company Number: US-JNJFOC-20100806392

PATIENT
  Sex: Female
  Weight: 80.74 kg

DRUGS (4)
  1. REMICADE [Suspect]
     Indication: CROHN'S DISEASE
     Route: 042
  2. BLOOD PRESSURE MEDICATION NOS [Concomitant]
     Indication: BLOOD PRESSURE
  3. ACID REFLUX MEDICATION [Concomitant]
     Indication: GASTROOESOPHAGEAL REFLUX DISEASE
  4. UNSPECIFIED CROHN'S DISEASE THERAPY [Concomitant]
     Indication: CROHN'S DISEASE

REACTIONS (2)
  - LUNG NEOPLASM [None]
  - PNEUMONIA BACTERIAL [None]
